FAERS Safety Report 5296220-7 (Version None)
Quarter: 2007Q2

REPORT INFORMATION
  Report Type: 
  Country: None (occurrence: None)
  Receive Date: 20070413
  Receipt Date: 20070404
  Transmission Date: 20071010
  Serious: Yes (Life-Threatening)
  Sender: FDA-Public Use
  Company Number: FR-GLAXOSMITHKLINE-B0465376A

PATIENT
  Age: 1 Year
  Sex: Female

DRUGS (5)
  1. ALKERAN [Suspect]
     Indication: BONE MARROW TRANSPLANT
     Route: 042
  2. ENDOXAN [Suspect]
     Indication: BONE MARROW TRANSPLANT
     Route: 042
  3. BUSULFAN [Suspect]
     Indication: BONE MARROW TRANSPLANT
     Route: 042
  4. CYCLOSPORINE [Concomitant]
  5. CORTICOIDS [Concomitant]

REACTIONS (6)
  - ANURIA [None]
  - ASCITES [None]
  - BLOOD BILIRUBIN INCREASED [None]
  - OLIGURIA [None]
  - VENOOCCLUSIVE LIVER DISEASE [None]
  - WEIGHT INCREASED [None]
